FAERS Safety Report 14873682 (Version 1)
Quarter: 2018Q2

REPORT INFORMATION
  Report Type: Report from Study
  Country: None (occurrence: US)
  Receive Date: 20180510
  Receipt Date: 20180510
  Transmission Date: 20180711
  Serious: Yes (Other)
  Sender: FDA-Public Use
  Company Number: US-ABBVIE-18K-163-2296588-00

PATIENT
  Age: 24 Year
  Sex: Female

DRUGS (1)
  1. HUMIRA [Suspect]
     Active Substance: ADALIMUMAB
     Indication: RHEUMATOID ARTHRITIS
     Route: 058
     Dates: start: 20180108, end: 2018

REACTIONS (5)
  - Thrombosis [Unknown]
  - Joint injury [Not Recovered/Not Resolved]
  - Joint effusion [Unknown]
  - Meniscus injury [Not Recovered/Not Resolved]
  - Cartilage atrophy [Not Recovered/Not Resolved]

NARRATIVE: CASE EVENT DATE: 2018
